FAERS Safety Report 6054073-3 (Version None)
Quarter: 2009Q1

REPORT INFORMATION
  Report Type: 
  Country: None (occurrence: None)
  Receive Date: 20090127
  Receipt Date: 20090122
  Transmission Date: 20090719
  Serious: Yes (Other)
  Sender: FDA-Public Use
  Company Number: DE-ABBOTT-09P-062-0499417-00

PATIENT
  Age: 16 Year
  Sex: Female
  Weight: 55 kg

DRUGS (5)
  1. HUMIRA [Suspect]
     Indication: CROHN'S DISEASE
     Dates: start: 20081009, end: 20090114
  2. REMICADE [Concomitant]
     Indication: CROHN'S DISEASE
     Dates: start: 20071015, end: 20080825
  3. REMICADE [Concomitant]
     Dosage: ON 6TH APPLICATION
     Dates: start: 20080825
  4. REMICADE [Concomitant]
     Dosage: ON 7TH AND 8TH APPLICATION
     Dates: start: 20080825
  5. SALOFALK [Concomitant]
     Indication: CROHN'S DISEASE
     Dosage: OPD
     Dates: start: 20060101, end: 20090116

REACTIONS (2)
  - BLOOD PRESSURE INCREASED [None]
  - PROTEINURIA [None]
